FAERS Safety Report 18986434 (Version 2)
Quarter: 2021Q1

REPORT INFORMATION
  Report Type: Report from Study
  Country: FI (occurrence: FI)
  Receive Date: 20210309
  Receipt Date: 20210330
  Transmission Date: 20210420
  Serious: Yes (Hospitalization)
  Sender: FDA-Public Use
  Company Number: FI-AGIOS-2102FI02529

PATIENT
  Age: 48 Year
  Sex: Female

DRUGS (5)
  1. DAUNORUBICIN [Concomitant]
     Active Substance: DAUNORUBICIN
     Indication: ACUTE MYELOID LEUKAEMIA
     Dosage: 160.2 MILLIGRAM
     Route: 065
     Dates: start: 20201230, end: 20210101
  2. CYTARABINE. [Concomitant]
     Active Substance: CYTARABINE
     Dosage: 5340 MILLIGRAM
     Route: 065
     Dates: start: 20200202, end: 20210207
  3. CYTARABINE. [Concomitant]
     Active Substance: CYTARABINE
     Indication: ACUTE MYELOID LEUKAEMIA
     Dosage: 530 MILLIGRAM
     Route: 065
     Dates: start: 20201230, end: 20210105
  4. IVOSIDENIB AML [Suspect]
     Active Substance: IVOSIDENIB
     Indication: ACUTE MYELOID LEUKAEMIA
     Dosage: 500 MILLIGRAM, QD
     Route: 048
     Dates: start: 20201230, end: 20210207
  5. DAUNORUBICIN [Concomitant]
     Active Substance: DAUNORUBICIN
     Dosage: 160.2 MILLIGRAM
     Route: 065
     Dates: start: 20210202, end: 20210204

REACTIONS (1)
  - Klebsiella infection [Recovered/Resolved]

NARRATIVE: CASE EVENT DATE: 20210207
